FAERS Safety Report 7608427-1 (Version None)
Quarter: 2011Q3

REPORT INFORMATION
  Report Type: 
  Country: None (occurrence: None)
  Receive Date: 20110714
  Receipt Date: 20110630
  Transmission Date: 20111222
  Serious: No
  Sender: FDA-Public Use
  Company Number: US-B.I. PHARMACEUTICALS,INC./RIDGEFIELD-2011-BP-16750BP

PATIENT
  Sex: Female

DRUGS (4)
  1. LISINOPRIL [Concomitant]
     Indication: HYPERTENSION
     Dosage: 40 MG
     Route: 048
     Dates: start: 20100101
  2. PRADAXA [Suspect]
     Indication: ATRIAL FIBRILLATION
     Dosage: 300 MG
     Route: 048
     Dates: start: 20110522
  3. METOPROLOL [Concomitant]
     Indication: HYPERTENSION
     Dosage: 100 MG
     Route: 048
     Dates: start: 20100101
  4. SYNTHROID [Concomitant]
     Indication: HYPOTHYROIDISM
     Dosage: 88 MCG
     Route: 048
     Dates: start: 20090101

REACTIONS (2)
  - HEADACHE [None]
  - CHEST PAIN [None]
